FAERS Safety Report 21188703 (Version 1)
Quarter: 2022Q3

REPORT INFORMATION
  Report Type: Spontaneous
  Country: US (occurrence: US)
  Receive Date: 20220809
  Receipt Date: 20220809
  Transmission Date: 20221027
  Serious: No
  Sender: FDA-Public Use
  Company Number: US-BAUSCH-BL-2022-019494

PATIENT
  Age: 28 Year
  Sex: Female
  Weight: 45.400 kg

DRUGS (2)
  1. ARESTIN [Suspect]
     Active Substance: MINOCYCLINE HYDROCHLORIDE
     Indication: Periodontitis
     Route: 048
  2. ARESTIN [Suspect]
     Active Substance: MINOCYCLINE HYDROCHLORIDE

REACTIONS (4)
  - Erythema [Not Recovered/Not Resolved]
  - Weight decreased [Unknown]
  - Patient dissatisfaction with treatment [Unknown]
  - Underdose [Unknown]
